FAERS Safety Report 9315724 (Version 1)
Quarter: 2013Q2

REPORT INFORMATION
  Report Type: Spontaneous
  Country: IT (occurrence: IT)
  Receive Date: 20130529
  Receipt Date: 20130529
  Transmission Date: 20140414
  Serious: Yes (Hospitalization)
  Sender: FDA-Public Use
  Company Number: PHHY2013IT053338

PATIENT
  Sex: Female

DRUGS (3)
  1. ALPRAZOLAM [Suspect]
     Indication: SUICIDE ATTEMPT
     Dosage: 15 MG, UNK
     Route: 048
     Dates: start: 20130514, end: 20130514
  2. ESTAZOLAM [Suspect]
     Indication: SUICIDE ATTEMPT
     Dosage: 60 MG, UNK
     Route: 048
     Dates: start: 20130514, end: 20130514
  3. STILNOX [Suspect]
     Indication: SUICIDE ATTEMPT
     Dosage: 210 MG, UNK
     Route: 048
     Dates: start: 20130514, end: 20130514

REACTIONS (3)
  - Self-injurious ideation [Unknown]
  - Sopor [Unknown]
  - Poverty of speech [Unknown]
